FAERS Safety Report 23955011 (Version 4)
Quarter: 2025Q1

REPORT INFORMATION
  Report Type: Spontaneous
  Country: US (occurrence: US)
  Receive Date: 20240610
  Receipt Date: 20250110
  Transmission Date: 20250409
  Serious: No
  Sender: BRISTOL-MYERS SQUIBB COMPANY
  Company Number: US-BRISTOL-MYERS SQUIBB COMPANY-2024-092891

PATIENT
  Age: 74 Year
  Sex: Female
  Weight: 82.1 kg

DRUGS (1)
  1. REVLIMID [Suspect]
     Active Substance: LENALIDOMIDE
     Indication: Plasma cell myeloma
     Route: 048

REACTIONS (5)
  - Contusion [Unknown]
  - Herpes virus infection [Not Recovered/Not Resolved]
  - Blood creatine increased [Recovering/Resolving]
  - Oral pain [Recovering/Resolving]
  - Mass [Unknown]
